FAERS Safety Report 15166417 (Version 2)
Quarter: 2019Q3

REPORT INFORMATION
  Report Type: Spontaneous
  Country: US (occurrence: US)
  Receive Date: 20180719
  Receipt Date: 20190723
  Transmission Date: 20191004
  Serious: No
  Sender: FDA-Public Use
  Company Number: US-OTSUKA-21197470

PATIENT
  Sex: Female
  Weight: 64 kg

DRUGS (7)
  1. REXULTI [Suspect]
     Active Substance: BREXPIPRAZOLE
     Dosage: 2 MG, UNK
     Route: 065
  2. ABILIFY [Suspect]
     Active Substance: ARIPIPRAZOLE
     Indication: ADJUVANT THERAPY
     Dosage: 2 MG, UNK
     Route: 048
  3. ZOLOFT [Concomitant]
     Active Substance: SERTRALINE HYDROCHLORIDE
     Indication: PRODUCT USED FOR UNKNOWN INDICATION
     Dosage: 300 MG, QD
     Route: 065
  4. REXULTI [Suspect]
     Active Substance: BREXPIPRAZOLE
     Indication: MAJOR DEPRESSION
     Dosage: 1 MG, UNK
     Route: 065
  5. REXULTI [Suspect]
     Active Substance: BREXPIPRAZOLE
     Indication: ADJUVANT THERAPY
     Dosage: 0.5 MG, QD
     Route: 048
  6. ABILIFY [Suspect]
     Active Substance: ARIPIPRAZOLE
     Indication: MAJOR DEPRESSION
     Dosage: 2 MG, UNK
     Route: 048
     Dates: start: 20140610
  7. REXULTI [Suspect]
     Active Substance: BREXPIPRAZOLE
     Dosage: 1.5 MG, UNK
     Route: 065

REACTIONS (12)
  - Protein urine present [Unknown]
  - Panic attack [Unknown]
  - Nervousness [Unknown]
  - Chest pain [Unknown]
  - Product dose omission [Unknown]
  - Abnormal dreams [Unknown]
  - Feeling abnormal [Unknown]
  - Tremor [Unknown]
  - Screaming [Unknown]
  - Wrong technique in product usage process [Unknown]
  - Crying [Unknown]
  - Disease recurrence [Unknown]
